FAERS Safety Report 9133325 (Version 1)
Quarter: 2013Q1

REPORT INFORMATION
  Report Type: Spontaneous
  Country: CA (occurrence: CA)
  Receive Date: 20130125
  Receipt Date: 20130125
  Transmission Date: 20140127
  Serious: Yes (Hospitalization)
  Sender: FDA-Public Use
  Company Number: CA-B.I. PHARMACEUTICALS,INC./RIDGEFIELD-2013-CN-00114CN

PATIENT
  Age: 75 Year
  Sex: Male
  Weight: 97 kg

DRUGS (7)
  1. PRADAX [Suspect]
     Dosage: 300 G
     Route: 065
  2. ALLOPURINOL [Concomitant]
  3. CARVEDILOL [Concomitant]
  4. DIGOXIN [Concomitant]
  5. LOSEC [Concomitant]
  6. NIACIN [Concomitant]
  7. RAMIPRIL [Concomitant]

REACTIONS (2)
  - Acute myocardial infarction [Unknown]
  - Coronary arterial stent insertion [Unknown]
